FAERS Safety Report 25584728 (Version 2)
Quarter: 2025Q3

REPORT INFORMATION
  Report Type: Spontaneous
  Country: US (occurrence: US)
  Receive Date: 20250721
  Receipt Date: 20250804
  Transmission Date: 20251020
  Serious: Yes (Hospitalization)
  Sender: ROCHE
  Company Number: US-ROCHE-10000337102

PATIENT
  Sex: Female

DRUGS (1)
  1. AVASTIN [Suspect]
     Active Substance: BEVACIZUMAB
     Indication: Ovarian cancer
     Route: 065
     Dates: end: 202504

REACTIONS (3)
  - Hypertension [Not Recovered/Not Resolved]
  - Illness [Unknown]
  - Aggression [Unknown]

NARRATIVE: CASE EVENT DATE: 20250201
